FAERS Safety Report 9345548 (Version 3)
Quarter: 2013Q3

REPORT INFORMATION
  Report Type: Spontaneous
  Country: FR (occurrence: FR)
  Receive Date: 20130613
  Receipt Date: 20130703
  Transmission Date: 20140515
  Serious: Yes (Other)
  Sender: FDA-Public Use
  Company Number: FR-JNJFOC-20130601657

PATIENT
  Sex: 0

DRUGS (2)
  1. TRAMADOL HYDROCHLORIDE [Suspect]
     Indication: PRODUCT USED FOR UNKNOWN INDICATION
     Route: 065
  2. UNKNOWN MEDICATION [Interacting]
     Indication: PRODUCT USED FOR UNKNOWN INDICATION
     Route: 065

REACTIONS (17)
  - Hypoglycaemia [Unknown]
  - Hyponatraemia [Unknown]
  - Nervous system disorder [Unknown]
  - Mental disorder [Unknown]
  - Convulsion [Unknown]
  - Hallucination [Unknown]
  - Skin disorder [Unknown]
  - Confusional state [Unknown]
  - Serotonin syndrome [Unknown]
  - Drug interaction [Unknown]
  - Pancreatitis [Unknown]
  - Dizziness [Unknown]
  - Somnolence [Unknown]
  - Headache [Unknown]
  - Rash maculo-papular [Unknown]
  - Urticaria [Unknown]
  - Oedema peripheral [Unknown]
